FAERS Safety Report 5926983-6 (Version None)
Quarter: 2008Q4

REPORT INFORMATION
  Report Type: 
  Country: None (occurrence: None)
  Receive Date: 20081021
  Receipt Date: 20081021
  Transmission Date: 20090506
  Serious: Yes (Death)
  Sender: FDA-Public Use
  Company Number: None

PATIENT
  Age: 44 Year
  Sex: Male
  Weight: 20.8655 kg

DRUGS (4)
  1. COVIRO LS 30 (LAMIVUDINE / STAVUDINE) [Suspect]
     Indication: HIV INFECTION
     Dosage: 300MG/60MG BID ORAL
     Route: 048
     Dates: start: 20070716, end: 20071203
  2. EFAVIRENZ [Suspect]
     Indication: HIV INFECTION
     Dosage: 600MG ONCE A DAY ORAL
     Route: 048
     Dates: start: 20070716, end: 20081001
  3. LAMIVUDINE + ZIDOVUDINE [Suspect]
     Indication: HIV INFECTION
     Dosage: 600/300MG BID ORAL
     Route: 048
     Dates: start: 20071203, end: 20081001
  4. COTRIMOXAZOLE [Concomitant]

REACTIONS (2)
  - ASPHYXIA [None]
  - COMPLETED SUICIDE [None]
